FAERS Safety Report 5398203-5 (Version None)
Quarter: 2007Q3

REPORT INFORMATION
  Report Type: 
  Country: None (occurrence: None)
  Receive Date: 20070726
  Receipt Date: 20070712
  Transmission Date: 20080115
  Serious: Yes (Other)
  Sender: FDA-Public Use
  Company Number: US-PFIZER INC-2006150373

PATIENT
  Sex: Female
  Weight: 90.7 kg

DRUGS (4)
  1. BEXTRA [Suspect]
     Indication: ARTHRITIS
     Dosage: TEXT:10-20MG-FREQ:DAILY
     Route: 048
  2. BEXTRA [Suspect]
     Indication: ARTHRALGIA
  3. BEXTRA [Suspect]
  4. BEXTRA [Suspect]
     Indication: PAIN

REACTIONS (4)
  - CATARACT [None]
  - MYOPATHY [None]
  - NEUROPATHY [None]
  - STEVENS-JOHNSON SYNDROME [None]
